FAERS Safety Report 4549061-X (Version None)
Quarter: 2005Q1

REPORT INFORMATION
  Report Type: 
  Country: None (occurrence: None)
  Receive Date: 20041227
  Receipt Date: 20041117
  Transmission Date: 20050727
  Serious: No
  Sender: FDA-Public Use
  Company Number: 04P-163-0267525-00

PATIENT
  Age: 67 Year
  Sex: Female
  Weight: 86.1834 kg

DRUGS (16)
  1. HUMIRA [Suspect]
     Indication: RHEUMATOID ARTHRITIS
     Dosage: 40 MG, 1 IN 2 WK, SUBCUTANEOUS
     Route: 058
     Dates: start: 20040618, end: 20040801
  2. BACTRIM [Suspect]
     Indication: SINUSITIS
     Dosage: PER ORAL
     Route: 048
     Dates: start: 20040716, end: 20040701
  3. BACTRIM [Suspect]
     Indication: SINUSITIS
     Dosage: PER ORAL
     Route: 048
     Dates: start: 20040901, end: 20040901
  4. FUROSEMIDE [Concomitant]
  5. POTASSIUM CHLORIDE [Concomitant]
  6. GLIPIZIDE [Concomitant]
  7. ISOSORBIDE [Concomitant]
  8. ASPIRIN [Concomitant]
  9. LOSARTAN POTASSIUM [Concomitant]
  10. ACETAMINOPHEN [Concomitant]
  11. MULTI-VITAMINS [Concomitant]
  12. METFORMIN HCL [Concomitant]
  13. TOCOPHEROL CONCENTRATE CAP [Concomitant]
  14. ZYRTEC-D 12 HOUR [Concomitant]
  15. CELECOXIB [Concomitant]
  16. PANTOPRAZOLE [Concomitant]

REACTIONS (9)
  - BLOOD POTASSIUM DECREASED [None]
  - CHILLS [None]
  - COUGH [None]
  - HYPOAESTHESIA [None]
  - NAUSEA [None]
  - OEDEMA PERIPHERAL [None]
  - PAIN [None]
  - PYREXIA [None]
  - SINUSITIS [None]
